FAERS Safety Report 9682000 (Version 1)
Quarter: 2013Q4

REPORT INFORMATION
  Report Type: Spontaneous
  Country: US (occurrence: US)
  Receive Date: 20131111
  Receipt Date: 20131111
  Transmission Date: 20140711
  Serious: Yes (Other)
  Sender: FDA-Public Use
  Company Number: PHHY2013US125203

PATIENT
  Age: 49 Year
  Sex: Male

DRUGS (3)
  1. RIBAVIRIN [Suspect]
     Indication: CHRONIC HEPATITIS C
     Dosage: 400 MG, DALY
     Route: 048
  2. RIBAVIRIN [Suspect]
     Dosage: 200 MG, DAILY
  3. PEGINTERFERON ALFA-2A [Suspect]
     Indication: CHRONIC HEPATITIS C
     Dosage: 135 UG, QW
     Route: 058

REACTIONS (10)
  - Arteriovenous fistula site infection [Unknown]
  - Renal failure acute [Unknown]
  - Anaemia [Not Recovered/Not Resolved]
  - Haemoglobin decreased [Recovering/Resolving]
  - Irritability [Unknown]
  - Fatigue [Unknown]
  - Nausea [Unknown]
  - Weight decreased [Unknown]
  - Myalgia [Unknown]
  - Disturbance in attention [Unknown]
